FAERS Safety Report 8694119 (Version 2)
Quarter: 2012Q4

REPORT INFORMATION
  Report Type: 
  Country: NL (occurrence: NL)
  Receive Date: 20120731
  Receipt Date: 20120920
  Transmission Date: 20130627
  Serious: Yes (Hospitalization)
  Sender: FDA-Public Use
  Company Number: PHHY2012NL065337

PATIENT
  Age: 64 Year
  Sex: Female

DRUGS (5)
  1. ZOMETA [Suspect]
     Indication: BREAST CANCER METASTATIC
     Dosage: 4 mg/100 ml 1x 28 days
  2. ZOMETA [Suspect]
     Dosage: 4 mg/100 ml 1x 28 days
     Dates: start: 20110207
  3. ZOMETA [Suspect]
     Dosage: 4 mg/100 ml 1x 28 days
     Dates: start: 20120628
  4. ZOMETA [Suspect]
     Dosage: 4 mg/100 ml 1x 28 days
     Dates: start: 20120727
  5. DEXAMETHASONE [Concomitant]

REACTIONS (3)
  - Blood glucose increased [Not Recovered/Not Resolved]
  - Hypotension [Recovered/Resolved]
  - General physical health deterioration [Unknown]
